FAERS Safety Report 6930666-3 (Version None)
Quarter: 2010Q3

REPORT INFORMATION
  Report Type: 
  Country: None (occurrence: None)
  Receive Date: 20100818
  Receipt Date: 20100812
  Transmission Date: 20110219
  Serious: Yes (Hospitalization)
  Sender: FDA-Public Use
  Company Number: FR-WYE-G06538010

PATIENT
  Sex: Male

DRUGS (5)
  1. PIPERACILLIN AND TAZOBACTAM [Suspect]
     Dosage: UNKNOWN
     Route: 042
     Dates: start: 20100609, end: 20100601
  2. PIPERACILLIN AND TAZOBACTAM [Suspect]
     Route: 042
     Dates: start: 20100711, end: 20100720
  3. COLCHICINE [Concomitant]
     Dosage: UNKNOWN
     Dates: start: 20100614, end: 20100601
  4. CIFLOX [Concomitant]
     Dosage: UNKNOWN
     Dates: start: 20100711, end: 20100720
  5. AMIKIN [Concomitant]
     Dosage: UNKNOWN
     Dates: start: 20100609, end: 20100601

REACTIONS (2)
  - AUTOIMMUNE THROMBOCYTOPENIA [None]
  - EPISTAXIS [None]
